FAERS Safety Report 23702358 (Version 3)
Quarter: 2024Q2

REPORT INFORMATION
  Report Type: Spontaneous
  Country: US (occurrence: US)
  Receive Date: 20240403
  Receipt Date: 20240522
  Transmission Date: 20240716
  Serious: No
  Sender: FDA-Public Use
  Company Number: US-SANOFI-01998658

PATIENT
  Age: 67 Year
  Sex: Male

DRUGS (1)
  1. LANTUS SOLOSTAR [Suspect]
     Active Substance: INSULIN GLARGINE
     Indication: Type 2 diabetes mellitus
     Dosage: 26 IU, QD
     Route: 065
     Dates: start: 2022

REACTIONS (1)
  - Blood glucose increased [Unknown]

NARRATIVE: CASE EVENT DATE: 20240329
